FAERS Safety Report 17153286 (Version 1)
Quarter: 2019Q4

REPORT INFORMATION
  Report Type: Spontaneous
  Country: JP (occurrence: JP)
  Receive Date: 20191213
  Receipt Date: 20191213
  Transmission Date: 20200122
  Serious: Yes (Hospitalization, Other)
  Sender: FDA-Public Use
  Company Number: JP-GLAXOSMITHKLINE-JP2019JPN218354

PATIENT
  Age: 92 Year
  Sex: Male

DRUGS (7)
  1. LOXOPROFEN SODIUM HYDRATE TABLET [Concomitant]
     Dosage: 60 MG, TID (AFTER EACH MEAL)
  2. TEPRENONE [Concomitant]
     Active Substance: TEPRENONE
     Dosage: 50 MG, TID (AFTER EACH MEAL)
  3. SILODOSIN. [Concomitant]
     Active Substance: SILODOSIN
     Dosage: 4 MG, BID (AFTER BREAKFAST AND DINNER)
  4. ZANTAC [Suspect]
     Active Substance: RANITIDINE HYDROCHLORIDE
     Dosage: 150 MG, BID (AFTER BREAKFAST AND DINNER)
     Route: 048
  5. ZYLORIC [Suspect]
     Active Substance: ALLOPURINOL
     Indication: HYPERURICAEMIA
     Dosage: 150 MG, QD (AFTER BREAKFAST)
     Route: 048
  6. BAYASPIRIN [Concomitant]
     Active Substance: ASPIRIN
     Dosage: 100 MG, QD (AFTER BREAKFAST)
  7. CANDESARTAN CILEXETIL TABLET [Concomitant]
     Dosage: 8 MG, QD (AFTER BREAKFAST)

REACTIONS (10)
  - Dehydration [Recovering/Resolving]
  - Depressed level of consciousness [Recovering/Resolving]
  - Nausea [Recovered/Resolved]
  - Vomiting [Recovered/Resolved]
  - Diarrhoea [Recovering/Resolving]
  - Asthenia [Unknown]
  - Prerenal failure [Recovering/Resolving]
  - Dizziness postural [Unknown]
  - Product dose omission [Unknown]
  - Gastroenteritis [Recovering/Resolving]
